FAERS Safety Report 9287094 (Version 3)
Quarter: 2013Q4

REPORT INFORMATION
  Report Type: Spontaneous
  Country: US (occurrence: US)
  Receive Date: 20130513
  Receipt Date: 20131029
  Transmission Date: 20140711
  Serious: Yes (Hospitalization)
  Sender: FDA-Public Use
  Company Number: US-B.I. PHARMACEUTICALS,INC./RIDGEFIELD-2013-BI-13274BP

PATIENT
  Age: 69 Year
  Sex: Male
  Weight: 104.33 kg

DRUGS (18)
  1. PRADAXA [Suspect]
     Indication: ATRIAL FIBRILLATION
     Dosage: 75 MG
     Route: 048
     Dates: start: 20120404, end: 20120528
  2. DEMODEX [Concomitant]
     Route: 048
  3. ALLOPURINOL [Concomitant]
     Dosage: 100 MG
     Route: 048
  4. POTASSIUM [Concomitant]
     Dosage: 20 MEQ
     Route: 048
  5. PRILOSEC OTC [Concomitant]
     Dosage: 20 MG
     Route: 048
  6. SENNA [Concomitant]
     Dosage: 8.6 MG
     Route: 048
  7. NORCO [Concomitant]
     Indication: PAIN
  8. LYRICA [Concomitant]
     Dosage: 150 MG
     Route: 048
  9. TENEX [Concomitant]
     Dosage: 1 MG
     Route: 048
  10. DIOVAN [Concomitant]
     Dosage: 325 MG
     Route: 048
  11. ZEMPLAR [Concomitant]
     Dosage: 1 MCG
     Route: 048
  12. HYDRALAZINE [Concomitant]
     Dosage: 300 MG
     Route: 048
  13. VITAMIN B12 [Concomitant]
     Dosage: 1000 MCG
     Route: 048
  14. CALCIUM ACETATE [Concomitant]
     Dosage: 2001 MG
     Route: 048
  15. COLACE [Concomitant]
     Dosage: 100 MG
     Route: 048
  16. PRAVACHOL [Concomitant]
     Dosage: 10 MG
     Route: 048
  17. HUMULIN R [Concomitant]
     Route: 058
  18. LANTUS [Concomitant]
     Dosage: 20 U
     Route: 058

REACTIONS (3)
  - Lower gastrointestinal haemorrhage [Recovered/Resolved]
  - Coagulopathy [Unknown]
  - Haemorrhagic anaemia [Unknown]
